FAERS Safety Report 9855554 (Version 1)
Quarter: 2014Q1

REPORT INFORMATION
  Report Type: Spontaneous
  Country: FR (occurrence: FR)
  Receive Date: 20140130
  Receipt Date: 20140130
  Transmission Date: 20141002
  Serious: Yes (Hospitalization)
  Sender: FDA-Public Use
  Company Number: FR-SA-2014SA008887

PATIENT
  Age: 62 Year
  Sex: Male

DRUGS (6)
  1. FASTURTEC [Suspect]
     Indication: PRODUCT USED FOR UNKNOWN INDICATION
     Route: 042
     Dates: start: 201208, end: 20130129
  2. NIPENT [Concomitant]
     Indication: HAIRY CELL LEUKAEMIA
     Route: 042
     Dates: start: 201208, end: 20121121
  3. BACTRIM [Concomitant]
     Route: 048
     Dates: start: 201208
  4. ZELITREX [Concomitant]
     Route: 048
     Dates: start: 201208
  5. SERETIDE [Concomitant]
     Route: 055
  6. FOLIC ACID [Concomitant]
     Route: 042
     Dates: start: 201208

REACTIONS (3)
  - Hepatitis [Recovered/Resolved]
  - Acute hepatic failure [Recovered/Resolved]
  - Thrombocytopenia [Recovered/Resolved]
